FAERS Safety Report 12988553 (Version 1)
Quarter: 2016Q4

REPORT INFORMATION
  Report Type: Spontaneous
  Country: US (occurrence: US)
  Receive Date: 20161130
  Receipt Date: 20161130
  Transmission Date: 20170207
  Serious: No
  Sender: FDA-Public Use
  Company Number: US-ALLERGAN-1000087154

PATIENT
  Sex: Female

DRUGS (1)
  1. NAMENDA [Suspect]
     Active Substance: MEMANTINE HYDROCHLORIDE
     Indication: TRIGEMINAL NEURALGIA
     Dosage: 15 MG

REACTIONS (3)
  - Blood pressure increased [Unknown]
  - Therapeutic response unexpected [Unknown]
  - Off label use [Unknown]
